FAERS Safety Report 8954846 (Version 1)
Quarter: 2012Q4

REPORT INFORMATION
  Report Type: 
  Country: US (occurrence: US)
  Receive Date: 20121210
  Receipt Date: 20121210
  Transmission Date: 20130627
  Serious: Yes (Other)
  Sender: FDA-Public Use
  Company Number: US-BAYER-2012-126577

PATIENT
  Age: 30 Year
  Sex: Female

DRUGS (1)
  1. BEYAZ [Suspect]
     Indication: CONTRACEPTION
     Dosage: UNK UNK one pill daily, QD
     Route: 048
     Dates: start: 2010

REACTIONS (3)
  - Vaginal haemorrhage [None]
  - Amenorrhoea [None]
  - Drug dose omission [None]
